FAERS Safety Report 10633166 (Version 2)
Quarter: 2015Q1

REPORT INFORMATION
  Report Type: Spontaneous
  Country: US (occurrence: US)
  Receive Date: 20141205
  Receipt Date: 20150115
  Transmission Date: 20150720
  Serious: Yes (Other)
  Sender: FDA-Public Use
  Company Number: US-BRISTOL-MYERS SQUIBB COMPANY-21524533

PATIENT
  Sex: Female

DRUGS (6)
  1. HYDROCODONE [Concomitant]
     Active Substance: HYDROCODONE
  2. METHOTREXATE [Concomitant]
     Active Substance: METHOTREXATE
  3. ORENCIA [Suspect]
     Active Substance: ABATACEPT
     Indication: RHEUMATOID ARTHRITIS
     Dosage: 125 MG, QWK
     Route: 058
     Dates: start: 20120928
  4. FOLIC ACID. [Concomitant]
     Active Substance: FOLIC ACID
  5. HYDROCORTISONE. [Concomitant]
     Active Substance: HYDROCORTISONE
  6. SAVELLA [Concomitant]
     Active Substance: MILNACIPRAN HYDROCHLORIDE

REACTIONS (1)
  - Asthma [Unknown]
